FAERS Safety Report 5280236-0 (Version None)
Quarter: 2007Q1

REPORT INFORMATION
  Report Type: 
  Country: None (occurrence: None)
  Receive Date: 20070326
  Receipt Date: 20070326
  Transmission Date: 20070707
  Serious: Yes (Life-Threatening, Hospitalization, Other)
  Sender: FDA-Public Use
  Company Number: None

PATIENT
  Age: 66 Year
  Sex: Male
  Weight: 95.2554 kg

DRUGS (2)
  1. CYMBALTA [Suspect]
     Indication: DEPRESSION
     Dosage: 1 DAILY PO
     Route: 048
     Dates: start: 20051011, end: 20051206
  2. CYMBALTA [Suspect]
     Dosage: 1 DAILY PO
     Route: 048
     Dates: start: 20051206, end: 20060120

REACTIONS (5)
  - DIVERTICULUM INTESTINAL HAEMORRHAGIC [None]
  - DRUG TOXICITY [None]
  - HEPATIC ENZYME INCREASED [None]
  - LARGE INTESTINAL ULCER [None]
  - SUICIDE ATTEMPT [None]
